FAERS Safety Report 12674039 (Version 1)
Quarter: 2016Q3

REPORT INFORMATION
  Report Type: Other
  Country: FR (occurrence: FR)
  Receive Date: 20160822
  Receipt Date: 20160822
  Transmission Date: 20161109
  Serious: Yes (Hospitalization)
  Sender: FDA-Public Use
  Company Number: FR-SYMPLMED PHARMACEUTICALS-2016SYMPLMED000301

PATIENT

DRUGS (5)
  1. COVERAM [Suspect]
     Active Substance: AMLODIPINE\PERINDOPRIL
     Indication: HYPERTENSION
     Dosage: 1 (5MG/5MG) TABLET, QD
     Route: 048
     Dates: start: 201507
  2. DEPAMIDE [Suspect]
     Active Substance: VALPROMIDE
     Indication: PRODUCT USED FOR UNKNOWN INDICATION
     Dosage: 2 DF, BID
     Route: 048
     Dates: start: 20160513
  3. MEMANTINE MYLAN [Suspect]
     Active Substance: MEMANTINE
     Indication: DEMENTIA ALZHEIMER^S TYPE
     Dosage: 20 MG, QD
     Route: 048
     Dates: start: 201509, end: 20160722
  4. RISPERIDONE MYLAN [Suspect]
     Active Substance: RISPERIDONE
     Indication: PRODUCT USED FOR UNKNOWN INDICATION
     Dosage: UNK
     Route: 048
     Dates: start: 20160709, end: 20160720
  5. GALANTAMINE MYLAN [Suspect]
     Active Substance: GALANTAMINE HYDROBROMIDE
     Indication: DEMENTIA ALZHEIMER^S TYPE
     Dosage: 16 MG, QD
     Route: 048
     Dates: start: 201509, end: 20160718

REACTIONS (4)
  - Deep vein thrombosis [Recovered/Resolved]
  - Cognitive disorder [Unknown]
  - Anaemia macrocytic [Unknown]
  - Psychotic behaviour [Unknown]

NARRATIVE: CASE EVENT DATE: 20160718
